FAERS Safety Report 9909571 (Version 1)
Quarter: 2014Q1

REPORT INFORMATION
  Report Type: Spontaneous
  Country: JP (occurrence: JP)
  Receive Date: 20140219
  Receipt Date: 20140219
  Transmission Date: 20141002
  Serious: Yes (Hospitalization, Other)
  Sender: FDA-Public Use
  Company Number: JP-PFIZER INC-2014044938

PATIENT
  Age: 23 Year
  Sex: Male
  Weight: 21 kg

DRUGS (1)
  1. MEDROL [Suspect]
     Dosage: UNK
     Route: 048

REACTIONS (1)
  - Ileus [Unknown]
